FAERS Safety Report 4309334-2 (Version None)
Quarter: 2004Q1

REPORT INFORMATION
  Report Type: 
  Country: None (occurrence: None)
  Receive Date: 20040302
  Receipt Date: 20040220
  Transmission Date: 20041129
  Serious: Yes (Hospitalization)
  Sender: FDA-Public Use
  Company Number: FR-GLAXOSMITHKLINE-B0324236A

PATIENT
  Age: 37 Year
  Sex: Male

DRUGS (6)
  1. AUGMENTIN '125' [Suspect]
     Route: 048
     Dates: start: 20031231, end: 20040108
  2. SULFADIAZINE [Suspect]
     Indication: CEREBRAL TOXOPLASMOSIS
     Dosage: 4G PER DAY
     Route: 048
     Dates: start: 20031229, end: 20040111
  3. MALOCIDE [Suspect]
     Indication: CEREBRAL TOXOPLASMOSIS
     Dosage: 50MG PER DAY
     Route: 048
     Dates: start: 20031229, end: 20040113
  4. CLINDAMYCIN HCL [Suspect]
     Dosage: 2.4G PER DAY
     Route: 048
     Dates: start: 20031231, end: 20040105
  5. CEPAZINE [Suspect]
     Dosage: 1G PER DAY
     Route: 048
     Dates: start: 20031229, end: 20040113
  6. TRIFLUCAN [Suspect]
     Dosage: 200MG UNKNOWN
     Route: 048
     Dates: start: 20031229, end: 20040112

REACTIONS (7)
  - CONJUNCTIVAL DISORDER [None]
  - NIKOLSKY'S SIGN [None]
  - OEDEMA PERIPHERAL [None]
  - RASH ERYTHEMATOUS [None]
  - SKIN DESQUAMATION [None]
  - SKIN DISORDER [None]
  - TOXIC EPIDERMAL NECROLYSIS [None]
